FAERS Safety Report 5534481-7 (Version None)
Quarter: 2007Q4

REPORT INFORMATION
  Report Type: 
  Country: None (occurrence: None)
  Receive Date: 20071205
  Receipt Date: 20071129
  Transmission Date: 20080405
  Serious: Yes (Life-Threatening)
  Sender: FDA-Public Use
  Company Number: FR-ASTRAZENECA-2007CG01479

PATIENT
  Age: 29695 Day
  Sex: Male
  Weight: 80 kg

DRUGS (4)
  1. INEXIUM [Suspect]
     Indication: GASTRITIS EROSIVE
     Route: 048
     Dates: start: 20061101, end: 20070301
  2. ATACAND [Concomitant]
     Route: 048
  3. SINTROM [Concomitant]
     Indication: ATRIAL FIBRILLATION
     Route: 048
  4. FUROSEMIDE [Concomitant]
     Route: 048

REACTIONS (4)
  - HAEMOGLOBIN DECREASED [None]
  - PLATELET COUNT DECREASED [None]
  - RED BLOOD CELL COUNT DECREASED [None]
  - WHITE BLOOD CELL COUNT DECREASED [None]
